FAERS Safety Report 11462384 (Version 1)
Quarter: 2015Q3

REPORT INFORMATION
  Report Type: Spontaneous
  Country: US (occurrence: US)
  Receive Date: 20150831
  Receipt Date: 20150831
  Transmission Date: 20151125
  Serious: No
  Sender: FDA-Public Use
  Company Number: US-ELI_LILLY_AND_COMPANY-US201009004986

PATIENT
  Age: 46 Year
  Sex: Male
  Weight: 82.09 kg

DRUGS (11)
  1. CYMBALTA [Suspect]
     Active Substance: DULOXETINE HYDROCHLORIDE
     Dosage: 30 MG, DAILY (1/D)
     Dates: start: 20100908, end: 20100912
  2. CARBIDOPA/LEVODOPA [Concomitant]
     Active Substance: CARBIDOPA\LEVODOPA
     Dosage: 1 D/F, 2/D
     Dates: start: 20080910, end: 201005
  3. CYMBALTA [Suspect]
     Active Substance: DULOXETINE HYDROCHLORIDE
     Indication: DEPRESSION
     Dosage: 30 MG, DAILY (1/D)
     Dates: start: 20091209, end: 20091215
  4. CELEXA [Concomitant]
     Active Substance: CITALOPRAM HYDROBROMIDE
     Dosage: 10 MG, DAILY (1/D)
     Dates: start: 20070425
  5. LORAZEPAM. [Concomitant]
     Active Substance: LORAZEPAM
     Dosage: 0.5 MG, AS NEEDED
     Dates: start: 20080910
  6. CYMBALTA [Suspect]
     Active Substance: DULOXETINE HYDROCHLORIDE
     Dosage: 60 MG, DAILY (1/D)
     Dates: start: 20100913
  7. CARBIDOPA/LEVODOPA [Concomitant]
     Active Substance: CARBIDOPA\LEVODOPA
     Dosage: 1 D/F, 2/D
     Dates: start: 20080910, end: 201005
  8. ARTANE [Concomitant]
     Active Substance: TRIHEXYPHENIDYL HYDROCHLORIDE
     Dosage: 2 MG, 2/D
     Dates: start: 20100310
  9. SOMA [Concomitant]
     Active Substance: CARISOPRODOL
     Dosage: 350 D/F, AS NEEDED
  10. CYMBALTA [Suspect]
     Active Substance: DULOXETINE HYDROCHLORIDE
     Dosage: 60 MG, DAILY (1/D)
     Dates: start: 20091216, end: 20100907
  11. TRAMADOL. [Concomitant]
     Active Substance: TRAMADOL
     Dosage: 50 MG, 2/D
     Dates: start: 2006

REACTIONS (13)
  - Headache [Unknown]
  - Parkinsonism [Not Recovered/Not Resolved]
  - Balance disorder [Unknown]
  - Vertigo [Not Recovered/Not Resolved]
  - Vision blurred [Not Recovered/Not Resolved]
  - Agitation [Recovered/Resolved]
  - Photophobia [Not Recovered/Not Resolved]
  - Abdominal pain upper [Not Recovered/Not Resolved]
  - Drug withdrawal syndrome [Not Recovered/Not Resolved]
  - Tremor [Recovered/Resolved]
  - Feeling abnormal [Unknown]
  - Dizziness [Not Recovered/Not Resolved]
  - Diarrhoea [Not Recovered/Not Resolved]

NARRATIVE: CASE EVENT DATE: 20100908
